FAERS Safety Report 10358411 (Version 4)
Quarter: 2019Q2

REPORT INFORMATION
  Report Type: Report from Study
  Country: PT (occurrence: PT)
  Receive Date: 20140801
  Receipt Date: 20190613
  Transmission Date: 20190711
  Serious: Yes (Hospitalization)
  Sender: FDA-Public Use
  Company Number: PT-ROCHE-1439275

PATIENT
  Age: 72 Year
  Sex: Female

DRUGS (46)
  1. TRASTUZUMAB. [Suspect]
     Active Substance: TRASTUZUMAB
     Dosage: DATE OF LAST DOSE PRIOR TO SAE: 17/JUL/2014
     Route: 042
     Dates: start: 20131003
  2. DOCETAXEL. [Suspect]
     Active Substance: DOCETAXEL
     Dosage: CYCLE 13
     Route: 042
     Dates: start: 20140627
  3. AMOXICILLIN. [Concomitant]
     Active Substance: AMOXICILLIN
     Dosage: SOLE DOSE
     Route: 065
     Dates: start: 20140523, end: 20140523
  4. FOSAVANCE [Concomitant]
     Active Substance: ALENDRONATE SODIUM\CHOLECALCIFEROL
     Route: 065
     Dates: start: 2010
  5. MIRTAZAPINA [Concomitant]
     Active Substance: MIRTAZAPINE
     Route: 065
     Dates: start: 20131128, end: 20131130
  6. AMOXICILLIN/CLAVULANIC ACID [Concomitant]
     Active Substance: AMOXICILLIN\CLAVULANIC ACID
     Dosage: 2000+200/MG
     Route: 065
     Dates: start: 20131227, end: 20140106
  7. PARACETAMOL [Concomitant]
     Active Substance: ACETAMINOPHEN
     Dosage: 10MG/ML
     Route: 065
     Dates: start: 20131003, end: 20131007
  8. ENOXAPARIN [Concomitant]
     Active Substance: ENOXAPARIN
     Dosage: 40MG/0.4ML
     Route: 065
     Dates: start: 20131003, end: 20131007
  9. TRASTUZUMAB. [Suspect]
     Active Substance: TRASTUZUMAB
     Indication: HER-2 POSITIVE BREAST CANCER
     Dosage: LOADING DOSE
     Route: 042
     Dates: start: 20130912, end: 20130912
  10. DOCETAXEL. [Suspect]
     Active Substance: DOCETAXEL
     Indication: HER-2 POSITIVE BREAST CANCER
     Dosage: DATE OF LAST DOSE PRIOR TO SAE: 17/JUL/2014
     Route: 042
     Dates: start: 20130912
  11. DOCETAXEL. [Suspect]
     Active Substance: DOCETAXEL
     Dosage: CYCLE 12
     Route: 042
     Dates: start: 20140606
  12. FLUCONAZOLE. [Concomitant]
     Active Substance: FLUCONAZOLE
     Dosage: 2/MG/ML
     Route: 065
     Dates: start: 20131105, end: 20131122
  13. MYCOSTATIN [Concomitant]
     Active Substance: NYSTATIN
     Dosage: 100000 U.I./ML
     Route: 065
     Dates: start: 20131014
  14. PANTOPRAZOL [PANTOPRAZOLE] [Concomitant]
     Active Substance: PANTOPRAZOLE
     Route: 065
     Dates: start: 20131105
  15. TRAMADOL. [Concomitant]
     Active Substance: TRAMADOL
     Dosage: 100MG/2ML
     Route: 065
     Dates: start: 20131003, end: 20131007
  16. ASPIRINE [Concomitant]
     Active Substance: ASPIRIN
     Route: 065
     Dates: start: 20140829
  17. TOLVON [Concomitant]
     Active Substance: MIANSERIN
     Route: 065
     Dates: start: 2005, end: 20140102
  18. AZITROMICINA [Concomitant]
     Active Substance: AZITHROMYCIN DIHYDRATE
     Route: 065
     Dates: start: 20131213, end: 20131215
  19. RAMIPRIL. [Concomitant]
     Active Substance: RAMIPRIL
     Route: 065
     Dates: start: 20140829
  20. HYDROCORTISONE. [Concomitant]
     Active Substance: HYDROCORTISONE
     Route: 042
     Dates: start: 20140719, end: 20140719
  21. PERTUZUMAB. [Suspect]
     Active Substance: PERTUZUMAB
     Indication: HER-2 POSITIVE BREAST CANCER
     Dosage: LOADING DOSE
     Route: 042
     Dates: start: 20130912, end: 20130912
  22. TRASTUZUMAB. [Suspect]
     Active Substance: TRASTUZUMAB
     Dosage: CYCLE 13
     Route: 042
     Dates: start: 20140627
  23. TRASTUZUMAB. [Suspect]
     Active Substance: TRASTUZUMAB
     Dosage: LAST DOSE PRIOR TO SAE 17/JUL/2014?CYCLE 14
     Route: 042
     Dates: start: 20140717
  24. MEXAZOLAM [Concomitant]
     Active Substance: MEXAZOLAM
     Route: 065
     Dates: start: 20131128, end: 20131130
  25. ESOMEPRAZOL [ESOMEPRAZOLE] [Concomitant]
     Route: 065
     Dates: start: 20131004, end: 20131104
  26. METOCLOPRAMIDE. [Concomitant]
     Active Substance: METOCLOPRAMIDE
     Dosage: 10MG/2ML
     Route: 065
     Dates: start: 20131003, end: 20131007
  27. TRASTUZUMAB. [Suspect]
     Active Substance: TRASTUZUMAB
     Dosage: CYCLE 12
     Route: 042
     Dates: start: 20140606
  28. DOCETAXEL. [Suspect]
     Active Substance: DOCETAXEL
     Dosage: CYCLE 14?LAST DOSE PRIOR TO SAE 17/JUL/2014
     Route: 042
     Dates: start: 20140717
  29. MYCOSTATIN [Concomitant]
     Active Substance: NYSTATIN
     Dosage: 100000/U.I/ML
     Route: 065
     Dates: start: 20131105, end: 20131111
  30. FLUIMUCIL [Concomitant]
     Active Substance: ACETYLCYSTEINE
     Route: 065
     Dates: start: 20131213, end: 20131218
  31. ZOLPIDEM [Concomitant]
     Active Substance: ZOLPIDEM\ZOLPIDEM TARTRATE
     Route: 065
     Dates: start: 20131128, end: 20131130
  32. CIPROFLOXACINA [CIPROFLOXACIN] [Concomitant]
     Route: 065
     Dates: start: 20131220, end: 20131227
  33. LOPERAMIDE [Concomitant]
     Active Substance: LOPERAMIDE
     Route: 065
     Dates: start: 20140425, end: 20140428
  34. FOLIFER [ASCORBIC ACID;CYANOCOBALAMIN;FERROUS FUMARATE;FOLIC ACID] [Concomitant]
     Dosage: FEMUM PLUS FOLIC ACID (1 PLUS 90 MG)
     Route: 065
     Dates: start: 20140808
  35. PERTUZUMAB. [Suspect]
     Active Substance: PERTUZUMAB
     Dosage: MAINTENANCE DOSE. DATE OF LAST DOSE PRIOR TO SAE 17/JUL/2014
     Route: 042
     Dates: start: 20131003
  36. BROMAZEPAM [Concomitant]
     Active Substance: BROMAZEPAM
     Route: 065
     Dates: start: 20130103
  37. LOPERAMIDE [Concomitant]
     Active Substance: LOPERAMIDE
     Route: 065
     Dates: start: 20140405, end: 20140407
  38. TRASTUZUMAB. [Suspect]
     Active Substance: TRASTUZUMAB
     Dosage: CYCLE 11
     Route: 042
     Dates: start: 20140516
  39. DOCETAXEL. [Suspect]
     Active Substance: DOCETAXEL
     Dosage: CYCLE 11
     Route: 042
     Dates: start: 20140516
  40. CIPROFLOXACINA [CIPROFLOXACIN] [Concomitant]
     Route: 065
     Dates: start: 20140628, end: 20140704
  41. NITROFURANTOINA [Concomitant]
     Active Substance: NITROFURANTOIN
     Route: 065
     Dates: start: 20140620, end: 20140625
  42. NYSTATIN. [Concomitant]
     Active Substance: NYSTATIN
     Dosage: 100000 UI/ML
     Route: 065
     Dates: start: 20131105, end: 20131111
  43. AMOXICILLIN. [Concomitant]
     Active Substance: AMOXICILLIN
     Route: 065
     Dates: start: 20140523, end: 20140523
  44. BISOPROLOL [Concomitant]
     Active Substance: BISOPROLOL
     Route: 065
     Dates: start: 20140829
  45. FLUCONAZOLE. [Concomitant]
     Active Substance: FLUCONAZOLE
     Dosage: 2MG/ML
     Route: 065
     Dates: start: 20131003, end: 20131021
  46. LOPERAMIDE [Concomitant]
     Active Substance: LOPERAMIDE
     Route: 065
     Dates: start: 20140517, end: 20140519

REACTIONS (1)
  - Cellulitis [Recovered/Resolved]

NARRATIVE: CASE EVENT DATE: 20140719
